FAERS Safety Report 7709742-3 (Version None)
Quarter: 2011Q3

REPORT INFORMATION
  Report Type: 
  Country: None (occurrence: None)
  Receive Date: 20110819
  Receipt Date: 20110818
  Transmission Date: 20111222
  Serious: Yes (Hospitalization)
  Sender: FDA-Public Use
  Company Number: 1000022846

PATIENT
  Age: 88 Year
  Sex: Female

DRUGS (3)
  1. CIPRALEX (ESCITALOPRAM OXALATE (ESCITALOPRAM OXALATE) [Concomitant]
  2. NEBIVOLOL HCL [Suspect]
     Indication: HYPERTENSION
     Dosage: 2.5 MG (2.5 MG, 1 IN 1 D), ORAL
     Route: 048
     Dates: start: 20110101, end: 20110702
  3. LORANS (LORAZEPAM) [Suspect]
     Indication: DEPRESSION
     Dosage: 8 GTT (8 GTT, 1 IN 1 D), ORAL
     Route: 048
     Dates: start: 20110101, end: 20110702

REACTIONS (2)
  - SYNCOPE [None]
  - ORTHOSTATIC HYPOTENSION [None]
